FAERS Safety Report 10219243 (Version 1)
Quarter: 2014Q2

REPORT INFORMATION
  Report Type: Spontaneous
  Country: US (occurrence: None)
  Receive Date: 20140604
  Receipt Date: 20140604
  Transmission Date: 20141212
  Serious: Yes (Hospitalization)
  Sender: FDA-Public Use
  Company Number: None

PATIENT
  Age: 55 Year
  Sex: Male
  Weight: 96.5 kg

DRUGS (2)
  1. SULFAMETHOXAZOLE/TRIMETHOPRIM [Suspect]
     Route: 048
     Dates: start: 20140511, end: 20140527
  2. LISINOPRIL [Suspect]
     Route: 048
     Dates: start: 20130716, end: 20140528

REACTIONS (4)
  - Vomiting [None]
  - Dizziness [None]
  - Hypovolaemia [None]
  - Renal failure acute [None]
